FAERS Safety Report 9814313 (Version 2)
Quarter: 2014Q1

REPORT INFORMATION
  Report Type: Spontaneous
  Country: SE (occurrence: SE)
  Receive Date: 20140113
  Receipt Date: 20140326
  Transmission Date: 20141002
  Serious: Yes (Other)
  Sender: FDA-Public Use
  Company Number: PHHY2014SE001745

PATIENT
  Age: 64 Year
  Sex: Male

DRUGS (10)
  1. TEGRETOL [Suspect]
     Dosage: UNK UKN, UNK
  2. METOPROLOL [Concomitant]
  3. RAMIPRIL [Concomitant]
  4. SALURES [Concomitant]
  5. TROMBYL [Concomitant]
  6. FELODIPINE [Concomitant]
  7. LIPITOR [Concomitant]
  8. KESTINE [Concomitant]
  9. METFORMIN [Concomitant]
  10. ALLOPURINOL [Concomitant]

REACTIONS (3)
  - Cognitive disorder [Recovered/Resolved]
  - Visual impairment [Recovered/Resolved]
  - Hyponatraemia [Recovered/Resolved]
